FAERS Safety Report 10891365 (Version 2)
Quarter: 2015Q2

REPORT INFORMATION
  Report Type: Spontaneous
  Country: FR (occurrence: FR)
  Receive Date: 20150306
  Receipt Date: 20150506
  Transmission Date: 20150821
  Serious: Yes (Hospitalization)
  Sender: FDA-Public Use
  Company Number: FR-SA-2015SA026022

PATIENT
  Age: 61 Year
  Sex: Male
  Weight: 87 kg

DRUGS (15)
  1. ALTIM [Concomitant]
     Active Substance: CORTIVAZOL
     Indication: ARTHRITIS
     Dosage: ROUTE: INTRA-JOINT
     Dates: start: 201502, end: 201502
  2. SODIUM?HYALURONATE/HYLAN G-F 20 [Concomitant]
     Dosage: ROUTE: INTRAJOINT
     Dates: start: 20150213, end: 20150213
  3. AUGMENTIN [Concomitant]
     Active Substance: AMOXICILLIN\CLAVULANATE POTASSIUM
     Indication: ARTHRITIS BACTERIAL
     Dosage: DOSE:3 G + 375 MG/DAY
     Route: 048
     Dates: start: 20150220, end: 20150223
  4. PREGABALIN. [Concomitant]
     Active Substance: PREGABALIN
     Indication: PAIN
     Route: 048
     Dates: start: 20150222, end: 20150226
  5. MORPHINE [Concomitant]
     Active Substance: MORPHINE
     Indication: PAIN
     Dosage: OVERALL DOSE:UP TO 50 MG/DAY?MORPHINE LP 30 MG 60 MG/DAY AND MORPHINE 10 MG UP TO 40 MG/DAY
     Route: 048
     Dates: start: 20150222
  6. ZAMUDOL [Concomitant]
     Active Substance: TRAMADOL HYDROCHLORIDE
     Indication: PAIN
     Route: 048
     Dates: start: 20150221, end: 20150222
  7. TELMISARTAN. [Concomitant]
     Active Substance: TELMISARTAN
     Indication: HYPERTENSION
  8. OROZAMUDOL [Concomitant]
     Active Substance: TRAMADOL
     Indication: PAIN
     Route: 048
     Dates: end: 20150222
  9. PARACETAMOL [Concomitant]
     Active Substance: ACETAMINOPHEN
     Indication: PAIN
     Route: 048
     Dates: start: 20150221
  10. LOVENOX [Suspect]
     Active Substance: ENOXAPARIN SODIUM
     Indication: PROPHYLAXIS
     Route: 058
     Dates: start: 20150221, end: 20150227
  11. METHYLPREDNISOLONE. [Concomitant]
     Active Substance: METHYLPREDNISOLONE
     Indication: ARTHRITIS
     Route: 042
     Dates: start: 20150227, end: 20150227
  12. DALACIN [Concomitant]
     Active Substance: CLINDAMYCIN\CLINDAMYCIN PHOSPHATE
     Indication: ARTHRITIS BACTERIAL
     Route: 048
     Dates: start: 20150222, end: 20150226
  13. OFLOXACIN. [Concomitant]
     Active Substance: OFLOXACIN
     Indication: ARTHRITIS BACTERIAL
     Dates: start: 20150222, end: 20150226
  14. BROMAZEPAM [Concomitant]
     Active Substance: BROMAZEPAM
     Indication: ANXIETY
     Route: 048
     Dates: start: 20150220
  15. LOVENOX [Suspect]
     Active Substance: ENOXAPARIN SODIUM
     Indication: PROPHYLAXIS
     Route: 058
     Dates: start: 201502

REACTIONS (3)
  - Phlebitis [Unknown]
  - Drug ineffective [Unknown]
  - Pain [Unknown]

NARRATIVE: CASE EVENT DATE: 20150227
